FAERS Safety Report 16156584 (Version 1)
Quarter: 2019Q2

REPORT INFORMATION
  Report Type: Report from Study
  Country: US (occurrence: US)
  Receive Date: 20190404
  Receipt Date: 20190404
  Transmission Date: 20190711
  Serious: Yes (Other)
  Sender: FDA-Public Use
  Company Number: PHEH2019US014041

PATIENT
  Sex: Female

DRUGS (1)
  1. COSENTYX [Suspect]
     Active Substance: SECUKINUMAB
     Indication: PSORIATIC ARTHROPATHY
     Dosage: 300 MG, QMO (ONCE EVERY 4 WEEKS)
     Route: 058
     Dates: start: 20180508

REACTIONS (6)
  - Tonsillar disorder [Unknown]
  - Pharyngeal swelling [Unknown]
  - Psoriatic arthropathy [Unknown]
  - Malaise [Unknown]
  - Throat tightness [Unknown]
  - Hypersensitivity [Unknown]
